FAERS Safety Report 7885668-X (Version None)
Quarter: 2011Q4

REPORT INFORMATION
  Report Type: 
  Country: None (occurrence: None)
  Receive Date: 20111102
  Receipt Date: 20110629
  Transmission Date: 20120403
  Serious: No
  Sender: FDA-Public Use
  Company Number: US-AMGEN-USASP2011033188

PATIENT
  Age: 60 Year
  Sex: Male
  Weight: 81.633 kg

DRUGS (1)
  1. ENBREL [Suspect]
     Dosage: 50 MG, QWK
     Route: 058

REACTIONS (2)
  - BACK PAIN [None]
  - DIZZINESS [None]
